FAERS Safety Report 10600228 (Version 4)
Quarter: 2015Q2

REPORT INFORMATION
  Report Type: Spontaneous
  Country: FR (occurrence: FR)
  Receive Date: 20141122
  Receipt Date: 20150518
  Transmission Date: 20150821
  Serious: Yes (Hospitalization, Other)
  Sender: FDA-Public Use
  Company Number: FR-009507513-1311FRA007885

PATIENT
  Age: 18 Year
  Sex: Female
  Weight: 45 kg

DRUGS (1)
  1. NEXPLANON [Suspect]
     Active Substance: ETONOGESTREL
     Indication: CONTRACEPTION
     Dosage: UNK, IN THE LEFT ARM
     Route: 059
     Dates: start: 20130402

REACTIONS (14)
  - Device embolisation [Recovered/Resolved]
  - Vaginal haemorrhage [Recovered/Resolved]
  - Device deployment issue [Recovered/Resolved]
  - Partial lung resection [Recovering/Resolving]
  - Needle issue [Unknown]
  - Medical device complication [Recovered/Resolved]
  - Affective disorder [Unknown]
  - Device difficult to use [Unknown]
  - Device dislocation [Recovered/Resolved]
  - Menstruation irregular [Unknown]
  - Libido decreased [Unknown]
  - Amenorrhoea [Unknown]
  - Metrorrhagia [Recovered/Resolved]
  - Hair growth abnormal [Unknown]

NARRATIVE: CASE EVENT DATE: 201304
